FAERS Safety Report 21008275 (Version 1)
Quarter: 2022Q2

REPORT INFORMATION
  Report Type: Report from Study
  Country: CA (occurrence: CA)
  Receive Date: 20220627
  Receipt Date: 20220627
  Transmission Date: 20220721
  Serious: Yes (Other)
  Sender: FDA-Public Use
  Company Number: CA-ABBVIE-22K-028-4445933-00

PATIENT
  Sex: Male

DRUGS (1)
  1. HUMIRA [Suspect]
     Active Substance: ADALIMUMAB
     Indication: Uveitis
     Route: 058
     Dates: start: 20201022

REACTIONS (6)
  - Retinal detachment [Unknown]
  - Incorrect dose administered [Unknown]
  - Fatigue [Unknown]
  - Irritability [Unknown]
  - Headache [Unknown]
  - Device difficult to use [Unknown]
